FAERS Safety Report 8091128-6 (Version None)
Quarter: 2012Q1

REPORT INFORMATION
  Report Type: 
  Country: None (occurrence: None)
  Receive Date: 20120129
  Receipt Date: 20111024
  Transmission Date: 20120608
  Serious: No
  Sender: FDA-Public Use
  Company Number: US-ABBOTT-11P-163-0867158-00

PATIENT

DRUGS (7)
  1. HUMIRA [Suspect]
     Indication: RHEUMATOID ARTHRITIS
  2. HUMIRA [Suspect]
     Indication: COLITIS ULCERATIVE
  3. ASACOLAND [Concomitant]
     Indication: COLITIS ULCERATIVE
  4. SUSTENEX [Concomitant]
     Indication: PRODUCT USED FOR UNKNOWN INDICATION
  5. CHOLESTYRAMINE [Concomitant]
     Indication: PRODUCT USED FOR UNKNOWN INDICATION
  6. FLAGYL [Suspect]
     Indication: PRODUCT USED FOR UNKNOWN INDICATION
     Dosage: X 10 DAYS
  7. PREDNISONE TAB [Concomitant]
     Indication: COLITIS ULCERATIVE
     Dosage: 6-7 MONTHS

REACTIONS (3)
  - CLOSTRIDIAL INFECTION [None]
  - DIARRHOEA HAEMORRHAGIC [None]
  - FATIGUE [None]
